FAERS Safety Report 7576285-X (Version None)
Quarter: 2011Q2

REPORT INFORMATION
  Report Type: 
  Country: None (occurrence: None)
  Receive Date: 20110628
  Receipt Date: 20110524
  Transmission Date: 20111010
  Serious: No
  Sender: FDA-Public Use
  Company Number: US-BAYER-2011-045831

PATIENT
  Age: 23 Year
  Sex: Male
  Weight: 66 kg

DRUGS (1)
  1. ALEVE (CAPLET) [Suspect]
     Indication: FOOT FRACTURE
     Dosage: TOOK 5 ALEVE PILLS AND THEN ANOTHER 2 PILLS
     Route: 048
     Dates: start: 20110524

REACTIONS (1)
  - NO ADVERSE EVENT [None]
